FAERS Safety Report 13851043 (Version 1)
Quarter: 2017Q3

REPORT INFORMATION
  Report Type: Spontaneous
  Country: US (occurrence: US)
  Receive Date: 20170810
  Receipt Date: 20170810
  Transmission Date: 20171127
  Serious: No
  Sender: FDA-Public Use
  Company Number: US-ASTRAZENECA-2017SE80449

PATIENT
  Age: 24656 Day
  Sex: Female
  Weight: 68.5 kg

DRUGS (2)
  1. METFORMIN [Concomitant]
     Active Substance: METFORMIN HYDROCHLORIDE
     Indication: DIABETES MELLITUS
     Route: 048
     Dates: start: 1990
  2. BYDUREON [Suspect]
     Active Substance: EXENATIDE
     Indication: DIABETES MELLITUS
     Route: 058
     Dates: start: 20170630

REACTIONS (9)
  - Feeling abnormal [Unknown]
  - Injection site mass [Unknown]
  - Erythema [Unknown]
  - Bronchitis [Unknown]
  - Pruritus [Unknown]
  - Nausea [Unknown]
  - Sinusitis [Unknown]
  - Diarrhoea [Unknown]
  - Pharyngitis [Unknown]

NARRATIVE: CASE EVENT DATE: 20170701
